FAERS Safety Report 10236874 (Version 1)
Quarter: 2014Q2

REPORT INFORMATION
  Report Type: Spontaneous
  Country: US (occurrence: US)
  Receive Date: 20140613
  Receipt Date: 20140613
  Transmission Date: 20141212
  Serious: Yes (Other)
  Sender: FDA-Public Use
  Company Number: US-PFIZER INC-2014161004

PATIENT
  Age: 53 Year
  Sex: Female
  Weight: 85.7 kg

DRUGS (1)
  1. PREMARIN [Suspect]
     Indication: HORMONE REPLACEMENT THERAPY
     Dosage: 2.5 MG (BY TAKING TWO TABLETS OF 1.25MG AT A TIME), 1X/DAY
     Route: 048

REACTIONS (2)
  - Plasma cell myeloma [Unknown]
  - Glaucoma [Unknown]
